FAERS Safety Report 8537832-4 (Version None)
Quarter: 2012Q3

REPORT INFORMATION
  Report Type: 
  Country: None (occurrence: None)
  Receive Date: 20120725
  Receipt Date: 20120713
  Transmission Date: 20120928
  Serious: Yes (Disabling, Other)
  Sender: FDA-Public Use
  Company Number: US-009507513-1103USA03950

PATIENT

DRUGS (5)
  1. CALCIUM (UNSPECIFIED) [Concomitant]
     Dosage: UNK UNK, QD
  2. FOSAMAX [Suspect]
     Dosage: UNK UNK, QW
     Route: 048
     Dates: start: 20080109
  3. FOSAMAX [Suspect]
     Indication: OSTEOPOROSIS
     Route: 048
     Dates: start: 20000101, end: 20100301
  4. MULTI-VITAMINS [Concomitant]
  5. FOSAMAX PLUS D [Suspect]
     Indication: OSTEOPOROSIS
     Dosage: 70 MG, QW
     Route: 048
     Dates: start: 20070426

REACTIONS (36)
  - ADVERSE DRUG REACTION [None]
  - CARDIAC MURMUR [None]
  - BONE DISORDER [None]
  - CATARACT [None]
  - OSTEOPENIA [None]
  - HYPERLIPIDAEMIA [None]
  - NOCTURIA [None]
  - PAPULE [None]
  - VOMITING [None]
  - BACK PAIN [None]
  - TENDONITIS [None]
  - BREAST PAIN [None]
  - HAEMORRHOID OPERATION [None]
  - CONSTIPATION [None]
  - SQUAMOUS CELL CARCINOMA OF SKIN [None]
  - RETINAL DETACHMENT [None]
  - ARTHRITIS [None]
  - FALL [None]
  - OSTEOARTHRITIS [None]
  - SIALOADENITIS [None]
  - SARCOMA [None]
  - NEOPLASM MALIGNANT [None]
  - TOOTH DISORDER [None]
  - MUSCLE RUPTURE [None]
  - FEMUR FRACTURE [None]
  - SQUAMOUS CELL CARCINOMA [None]
  - CARPAL TUNNEL SYNDROME [None]
  - BLOOD CREATININE INCREASED [None]
  - ACTINIC KERATOSIS [None]
  - BASAL CELL CARCINOMA [None]
  - HYPERCALCAEMIA [None]
  - BRONCHITIS [None]
  - EXTRASYSTOLES [None]
  - PAIN IN EXTREMITY [None]
  - NAUSEA [None]
  - INAPPROPRIATE SCHEDULE OF DRUG ADMINISTRATION [None]
